FAERS Safety Report 11255196 (Version 1)
Quarter: 2015Q3

REPORT INFORMATION
  Report Type: Report from Study
  Country: JP (occurrence: JP)
  Receive Date: 20150709
  Receipt Date: 20150709
  Transmission Date: 20151125
  Serious: Yes (Hospitalization)
  Sender: FDA-Public Use
  Company Number: ALJP2015JP000685

PATIENT
  Age: 65 Year
  Sex: Male

DRUGS (3)
  1. BLINDED BRINZOLAMIDE/TIMOLOL [Suspect]
     Active Substance: BRINZOLAMIDE\TIMOLOL
     Indication: OPEN ANGLE GLAUCOMA
  2. LATANOPROST OPHTHALMIC SOLUTION [Concomitant]
     Indication: GLAUCOMA
     Dosage: UNK UNK, QD
     Route: 047
     Dates: start: 20150523
  3. BLINDED BRINZOLAMIDE/TIMOLOL [Suspect]
     Active Substance: BRINZOLAMIDE\TIMOLOL
     Indication: OCULAR HYPERTENSION
     Dosage: 1 GTT, BID
     Route: 047
     Dates: start: 20150507

REACTIONS (1)
  - Appendicitis [Unknown]

NARRATIVE: CASE EVENT DATE: 20150428
